FAERS Safety Report 9225017 (Version 1)
Quarter: 2013Q2

REPORT INFORMATION
  Report Type: Spontaneous
  Country: JP (occurrence: None)
  Receive Date: 20130409
  Receipt Date: 20130409
  Transmission Date: 20140414
  Serious: Yes (Hospitalization)
  Sender: FDA-Public Use
  Company Number: TCI2013A01615

PATIENT
  Age: 64 Year
  Sex: Female

DRUGS (7)
  1. ACTOS [Suspect]
     Indication: DIABETES MELLITUS
     Route: 048
     Dates: start: 20130308, end: 20130315
  2. FASTIC (NATEGLINIDE) [Suspect]
     Route: 048
     Dates: start: 20130310, end: 20130317
  3. KEPPRA [Suspect]
     Dosage: 1000 MG (500MG 2 IN 1 D) ORAL
     Route: 048
     Dates: start: 20130220
  4. TEGRETOL [Suspect]
     Route: 048
     Dates: start: 20130220
  5. AMARYL [Concomitant]
  6. EQUA [Concomitant]
  7. LASIX (FUROSEMIDE) [Concomitant]

REACTIONS (1)
  - Pancytopenia [None]
